FAERS Safety Report 12633066 (Version 2)
Quarter: 2016Q3

REPORT INFORMATION
  Report Type: Spontaneous
  Country: US (occurrence: US)
  Receive Date: 20160808
  Receipt Date: 20160808
  Transmission Date: 20161109
  Serious: No
  Sender: FDA-Public Use
  Company Number: US-BEH-2016058337

PATIENT
  Sex: Female
  Weight: 47 kg

DRUGS (21)
  1. HIZENTRA [Suspect]
     Active Substance: HUMAN IMMUNOGLOBULIN G
     Indication: IMMUNODEFICIENCY
     Route: 058
     Dates: start: 20110615
  2. METHOTREXATE. [Concomitant]
     Active Substance: METHOTREXATE
  3. NORCO [Concomitant]
     Active Substance: ACETAMINOPHEN\HYDROCODONE BITARTRATE
  4. ACETAMINOPHEN. [Concomitant]
     Active Substance: ACETAMINOPHEN
  5. WELLBUTRIN [Concomitant]
     Active Substance: BUPROPION HYDROCHLORIDE
  6. LMX [Concomitant]
     Active Substance: LIDOCAINE
  7. CYANOCOBALAMIN. [Concomitant]
     Active Substance: CYANOCOBALAMIN
  8. FLUCONAZOLE. [Concomitant]
     Active Substance: FLUCONAZOLE
  9. PREVACID [Concomitant]
     Active Substance: LANSOPRAZOLE
  10. DIPHENHYDRAMINE. [Concomitant]
     Active Substance: DIPHENHYDRAMINE
  11. ATENOLOL. [Concomitant]
     Active Substance: ATENOLOL
  12. RESTORIL [Concomitant]
     Active Substance: TEMAZEPAM
  13. LEUVORIN [Concomitant]
  14. EPIPEN [Concomitant]
     Active Substance: EPINEPHRINE
  15. LOVENOX [Concomitant]
     Active Substance: ENOXAPARIN SODIUM
  16. HUMIRA [Concomitant]
     Active Substance: ADALIMUMAB
  17. FLEXERIL [Concomitant]
     Active Substance: CYCLOBENZAPRINE HYDROCHLORIDE
  18. KLONOPIN [Concomitant]
     Active Substance: CLONAZEPAM
  19. SANSODTATIN [Concomitant]
  20. DRONABINOL. [Concomitant]
     Active Substance: DRONABINOL
  21. LEVSIN [Concomitant]
     Active Substance: HYOSCYAMINE SULFATE

REACTIONS (2)
  - Administration site swelling [Unknown]
  - Administration site erythema [Unknown]
